FAERS Safety Report 4524575-7 (Version None)
Quarter: 2004Q4

REPORT INFORMATION
  Report Type: 
  Country: None (occurrence: None)
  Receive Date: 20041117
  Receipt Date: 20040507
  Transmission Date: 20050328
  Serious: Yes (Hospitalization)
  Sender: FDA-Public Use
  Company Number: US-JNJFOC-20040501759

PATIENT
  Age: 41 Year
  Sex: Male
  Weight: 111.1313 kg

DRUGS (3)
  1. LEVAQUIN [Suspect]
     Indication: PNEUMONIA
     Dosage: 500 MG
  2. ALBUTEROL [Concomitant]
  3. ACETAMER (LISINOPRIL [Concomitant]

REACTIONS (1)
  - HYPERSENSITIVITY [None]
